FAERS Safety Report 7562043-9 (Version None)
Quarter: 2011Q2

REPORT INFORMATION
  Report Type: 
  Country: None (occurrence: None)
  Receive Date: 20110622
  Receipt Date: 20090128
  Transmission Date: 20111010
  Serious: Yes (Death)
  Sender: FDA-Public Use
  Company Number: PHHY2009DE68664

PATIENT
  Sex: Female
  Weight: 75 kg

DRUGS (6)
  1. METOPROLOL TARTRATE [Concomitant]
  2. FUROSEMIDE [Concomitant]
  3. ACETYL SALICYLIC ACID COMPOUND TAB [Concomitant]
  4. SANDOSTATIN LAR [Suspect]
     Indication: ACROMEGALY
     Dosage: 30 MG, UNK
     Route: 030
     Dates: start: 20090128
  5. CORTISONE [Concomitant]
  6. FEMARA [Concomitant]

REACTIONS (1)
  - DEATH [None]
